FAERS Safety Report 24020694 (Version 1)
Quarter: 2024Q2

REPORT INFORMATION
  Report Type: Report from Study
  Country: US (occurrence: US)
  Receive Date: 20240627
  Receipt Date: 20240627
  Transmission Date: 20240716
  Serious: Yes (Other)
  Sender: FDA-Public Use
  Company Number: US-ABBVIE-5637627

PATIENT
  Sex: Female
  Weight: 68 kg

DRUGS (4)
  1. HUMIRA [Suspect]
     Active Substance: ADALIMUMAB
     Indication: Crohn^s disease
     Dosage: FORM STRENGTH WAS 40 MILLIGRAMS
     Route: 058
     Dates: start: 2008, end: 202312
  2. HYDROCODONE [Concomitant]
     Active Substance: HYDROCODONE
     Indication: Pain
     Dosage: 7.5 MILLIGRAM
  3. TESTOSTERONE [Concomitant]
     Active Substance: TESTOSTERONE
     Indication: Hormone replacement therapy
     Route: 061
  4. ESTRADIOL [Concomitant]
     Active Substance: ESTRADIOL
     Indication: Menopausal symptoms

REACTIONS (12)
  - Foot fracture [Recovering/Resolving]
  - Tendon dislocation [Recovering/Resolving]
  - Therapeutic product effect decreased [Unknown]
  - Intestinal cyst [Not Recovered/Not Resolved]
  - Ligament disorder [Recovering/Resolving]
  - Hepatic cyst [Not Recovered/Not Resolved]
  - Fall [Recovered/Resolved]
  - Traumatic fracture [Unknown]
  - Fatigue [Not Recovered/Not Resolved]
  - Iritis [Unknown]
  - Renal cyst [Unknown]
  - Shoulder fracture [Unknown]

NARRATIVE: CASE EVENT DATE: 20140101
